FAERS Safety Report 6833652-7 (Version None)
Quarter: 2010Q3

REPORT INFORMATION
  Report Type: 
  Country: None (occurrence: None)
  Receive Date: 20100712
  Receipt Date: 20070329
  Transmission Date: 20110219
  Serious: No
  Sender: FDA-Public Use
  Company Number: US-PFIZER INC-2007026406

PATIENT
  Sex: Female
  Weight: 49.9 kg

DRUGS (7)
  1. CHANTIX [Suspect]
     Indication: SMOKING CESSATION THERAPY
     Dates: start: 20070318
  2. LIPITOR [Concomitant]
  3. ACETYLSALICYLIC ACID [Concomitant]
  4. MONTELUKAST SODIUM [Concomitant]
  5. VITAMINS [Concomitant]
  6. FISH OIL [Concomitant]
  7. FIBRE, DIETARY [Concomitant]

REACTIONS (2)
  - ABNORMAL DREAMS [None]
  - CONSTIPATION [None]
